FAERS Safety Report 24342495 (Version 10)
Quarter: 2025Q4

REPORT INFORMATION
  Report Type: Spontaneous
  Country: EU (occurrence: EU)
  Receive Date: 20240920
  Receipt Date: 20251227
  Transmission Date: 20260118
  Serious: Yes (Hospitalization, Other)
  Sender: CELLTRION
  Company Number: EU-CELLTRION INC.-2024DE013866

PATIENT

DRUGS (79)
  1. INFLIXIMAB [Suspect]
     Active Substance: INFLIXIMAB
     Indication: Axial spondyloarthritis
     Dosage: 400 MG, EVERY 2 WEEKS; VISIT/DATE OF T09: 2023-05-03, T10: 2023-08-25, AND T11: 2023-12-08
     Route: 042
     Dates: start: 20230419
  2. INFLIXIMAB [Suspect]
     Active Substance: INFLIXIMAB
     Indication: Axial spondyloarthritis
     Dosage: 120 MG (T11: 2023-12-08), (T12: 2024-10-18), EVERY 2 WEEKS
     Route: 058
     Dates: start: 20230419
  3. IBUPROFEN [Concomitant]
     Active Substance: IBUPROFEN
     Dosage: 600 MG 7 DAYS PER WEEK ; T03: 2020-01-13, T04: 2020-11-25, T05: 2021-05-20, T06: 2021-08-26, T07: 20
     Dates: start: 20191105, end: 20250101
  4. IBUPROFEN [Concomitant]
     Active Substance: IBUPROFEN
     Dosage: 600 MG; T00: 2019-02-18
  5. IBUPROFEN [Concomitant]
     Active Substance: IBUPROFEN
     Dosage: 600 MG; T01: 2019-05-20 SEVEN DAYS PER WEEK
     Dates: start: 20180615, end: 20190310
  6. IBUPROFEN [Concomitant]
     Active Substance: IBUPROFEN
     Dosage: 600 MG; T03: 2020-01-13
     Dates: start: 20191105
  7. IBUPROFEN [Concomitant]
     Active Substance: IBUPROFEN
     Dosage: 600 MG; T04: 2020-11-25
     Dates: start: 20191105
  8. IBUPROFEN [Concomitant]
     Active Substance: IBUPROFEN
     Dosage: 600 MG; T05: 2021-05-20
     Dates: start: 20191105
  9. IBUPROFEN [Concomitant]
     Active Substance: IBUPROFEN
     Dosage: 600 MG; T06: 2021-08-26
     Dates: start: 20191105
  10. IBUPROFEN [Concomitant]
     Active Substance: IBUPROFEN
     Dosage: 600 MG; T07: 2022-02-18
     Dates: start: 20191105
  11. IBUPROFEN [Concomitant]
     Active Substance: IBUPROFEN
     Dosage: 600 MG; T08: 2022-09-22
     Dates: start: 20191105
  12. IBUPROFEN [Concomitant]
     Active Substance: IBUPROFEN
     Dosage: 600 MG;T09: 2023-05-03
     Dates: start: 20191105
  13. IBUPROFEN [Concomitant]
     Active Substance: IBUPROFEN
     Dosage: 600 MG;T10: 2023-08-25
     Dates: start: 20191105
  14. IBUPROFEN [Concomitant]
     Active Substance: IBUPROFEN
     Dosage: 600 MG;T11: 2023-12-08
     Dates: start: 20191105
  15. IBUPROFEN [Concomitant]
     Active Substance: IBUPROFEN
     Dosage: 600 MG;T12: 2024-10-18 SEVEN DAYS PER WEEK
     Dates: start: 20191105, end: 20250101
  16. CELECOXIB [Concomitant]
     Active Substance: CELECOXIB
     Dosage: 200MG 1 DAY PER WEEK; T01: 2019-05-20, T02: 2019-09-23, T03: 2020-01-13, T04: 2020-11-25, T05: 2021-
     Dates: start: 20190311, end: 20250101
  17. METHOTREXATE SODIUM [Concomitant]
     Active Substance: METHOTREXATE SODIUM
     Dosage: 10 MG, PER WEEK; T03: 2020-01-13, T04: 2020-11-25, T05: 2021-05-20, T06: 2021-08-26, T07: 2022-02-18
     Route: 058
     Dates: start: 20191105
  18. METHOTREXATE SODIUM [Concomitant]
     Active Substance: METHOTREXATE SODIUM
     Dosage: 10 MG; T01: 2019-05-20
     Route: 058
     Dates: start: 20190520
  19. METHOTREXATE SODIUM [Concomitant]
     Active Substance: METHOTREXATE SODIUM
     Dosage: 10 MG PER WEEK; T02: 2019-09-23
     Route: 058
     Dates: start: 20190520, end: 20190520
  20. METHOTREXATE SODIUM [Concomitant]
     Active Substance: METHOTREXATE SODIUM
     Dosage: 10 MG; T03: 2020-01-13
     Route: 058
     Dates: start: 20191105
  21. METHOTREXATE SODIUM [Concomitant]
     Active Substance: METHOTREXATE SODIUM
     Dosage: 10 MG; T04: 2020-11-25
     Route: 058
     Dates: start: 20191105
  22. METHOTREXATE SODIUM [Concomitant]
     Active Substance: METHOTREXATE SODIUM
     Dosage: 10 MG; T05: 2021-05-20
     Route: 058
     Dates: start: 20191105
  23. METHOTREXATE SODIUM [Concomitant]
     Active Substance: METHOTREXATE SODIUM
     Dosage: 10 MG; T06: 2021-08-26
     Route: 058
     Dates: start: 20191105
  24. METHOTREXATE SODIUM [Concomitant]
     Active Substance: METHOTREXATE SODIUM
     Dosage: 10 MG; T07: 2022-02-18
     Route: 058
     Dates: start: 20191105
  25. METHOTREXATE SODIUM [Concomitant]
     Active Substance: METHOTREXATE SODIUM
     Dosage: 10 MG; T08: 2022-09-22
     Route: 058
     Dates: start: 20191105
  26. METHOTREXATE SODIUM [Concomitant]
     Active Substance: METHOTREXATE SODIUM
     Dosage: 10 MG; T09: 2023-05-03
     Route: 058
     Dates: start: 20191105
  27. METHOTREXATE SODIUM [Concomitant]
     Active Substance: METHOTREXATE SODIUM
     Dosage: 10 MG; T10: 2023-08-25
     Route: 058
     Dates: start: 20191105
  28. METHOTREXATE SODIUM [Concomitant]
     Active Substance: METHOTREXATE SODIUM
     Dosage: 10 MG; T11: 2023-12-08
     Route: 058
     Dates: start: 20191105
  29. METHOTREXATE SODIUM [Concomitant]
     Active Substance: METHOTREXATE SODIUM
     Dosage: 10 MG PER WEEK; T12: 2024-10-18
     Route: 058
     Dates: start: 20191105
  30. BISOPROLOL [Concomitant]
     Active Substance: BISOPROLOL
     Dosage: 5 MG
  31. LEVOTHYROXINE [Concomitant]
     Active Substance: LEVOTHYROXINE
     Dosage: 75 MICROGRAM
  32. PANTOPRAZOLE [Concomitant]
     Active Substance: PANTOPRAZOLE
     Dosage: 40 MG
  33. PROGESTERONE [Concomitant]
     Active Substance: PROGESTERONE
     Dosage: 200 MG
  34. ESTRADIOL [Concomitant]
     Active Substance: ESTRADIOL
     Dosage: 0.075 MG/D
  35. ESTRADIOL [Concomitant]
     Active Substance: ESTRADIOL
     Dosage: 0.075 MG/D
  36. ESTRIOL [Concomitant]
     Active Substance: ESTRIOL
     Dosage: 1 MG
  37. MIRABEGRON [Concomitant]
     Active Substance: MIRABEGRON
     Dosage: 50 MG
  38. MOVICOL [Concomitant]
     Active Substance: POLYETHYLENE GLYCOL 3350\POTASSIUM CHLORIDE\SODIUM BICARBONATE\SODIUM CHLORIDE
     Dosage: UNK
  39. MEBEVERINE [Concomitant]
     Active Substance: MEBEVERINE
     Dosage: 200 MG
  40. CHOLECALCIFEROL [Concomitant]
     Active Substance: CHOLECALCIFEROL
     Dosage: 1000IE
  41. SERTRALINE [Concomitant]
     Active Substance: SERTRALINE HYDROCHLORIDE
     Dosage: 100 MG
  42. QUETIAPINE [Concomitant]
     Active Substance: QUETIAPINE
     Dosage: 25 MG
  43. OPIPRAMOL [Concomitant]
     Active Substance: OPIPRAMOL
     Dosage: 50 MG
  44. BUPRENORPHINE [Concomitant]
     Active Substance: BUPRENORPHINE
     Dosage: 10 MICROGRAM/H (PATCH)
  45. BUPRENORPHINE [Concomitant]
     Active Substance: BUPRENORPHINE
     Dosage: 0.2 MG
  46. FOLIC ACID [Concomitant]
     Active Substance: FOLIC ACID
     Dosage: UNK
  47. ALBUTEROL [Concomitant]
     Active Substance: ALBUTEROL
     Dosage: 0.1 MG
  48. BUDESONIDE [Concomitant]
     Active Substance: BUDESONIDE
     Dosage: 0.4 MG
  49. ENOXAPARIN [Concomitant]
     Active Substance: ENOXAPARIN
     Dosage: AT 80MG/0.8ML
  50. CLARITHROMYCIN [Concomitant]
     Active Substance: CLARITHROMYCIN
     Dosage: 500 MG
  51. CEFPODOXIME [Concomitant]
     Active Substance: CEFPODOXIME
     Dosage: 200 MG
  52. METAMIZOL [Concomitant]
     Active Substance: METAMIZOLE SODIUM
     Dosage: 500 MG
  53. ENBREL [Concomitant]
     Active Substance: ETANERCEPT
     Dosage: 50 MG; T00: 2019-02-18, T01: 2019-05-20, T02: 2019-09-23, T03: 2020-01-13, T04: 2020-11-25, T05: 202
     Dates: start: 20190218
  54. ENBREL [Concomitant]
     Active Substance: ETANERCEPT
     Dosage: 50 MG; T09: 2023-05-03
     Dates: start: 20190218, end: 20220901
  55. ENBREL [Concomitant]
     Active Substance: ETANERCEPT
     Dosage: 50 MG; T01: 2019-05-20
     Dates: start: 20190218
  56. ENBREL [Concomitant]
     Active Substance: ETANERCEPT
     Dosage: 50 MG; T02: 2019-09-23
     Dates: start: 20190218
  57. ENBREL [Concomitant]
     Active Substance: ETANERCEPT
     Dosage: 50 MG; T03: 2020-01-13
     Dates: start: 20190218
  58. ENBREL [Concomitant]
     Active Substance: ETANERCEPT
     Dosage: 50 MG; T04: 2020-11-25
     Dates: start: 20190218
  59. ENBREL [Concomitant]
     Active Substance: ETANERCEPT
     Dosage: 50 MG;T05: 2021-05-20
     Dates: start: 20190218
  60. ENBREL [Concomitant]
     Active Substance: ETANERCEPT
     Dosage: 50 MG;T06: 2021-08-26
     Dates: start: 20190218
  61. ENBREL [Concomitant]
     Active Substance: ETANERCEPT
     Dosage: 50 MG;T07: 2022-02-18
     Dates: start: 20190218
  62. ENBREL [Concomitant]
     Active Substance: ETANERCEPT
     Dosage: 50 MG;T08: 2022-09-22
     Dates: start: 20190218, end: 20220901
  63. BUPRENORPHINE HYDROCHLORIDE [Concomitant]
     Active Substance: BUPRENORPHINE HYDROCHLORIDE
     Dosage: 0.2 MG
     Route: 060
  64. ESTRIOL [Concomitant]
     Active Substance: ESTRIOL
  65. NORFLOXACIN [Concomitant]
     Active Substance: NORFLOXACIN
     Dosage: 10/H
  66. FOLIC ACID [Concomitant]
     Active Substance: FOLIC ACID
  67. ESTRADIOL [Concomitant]
     Active Substance: ESTRADIOL
     Dosage: 25
     Route: 062
  68. CHOLECALCIFEROL [Concomitant]
     Active Substance: CHOLECALCIFEROL
     Dosage: 1000 IE
  69. ENOXAPARIN SODIUM [Concomitant]
     Active Substance: ENOXAPARIN SODIUM
     Dosage: 4000 IE
  70. OXYBUTYNIN [Concomitant]
     Active Substance: OXYBUTYNIN
  71. PROGESTERONE [Concomitant]
     Active Substance: PROGESTERONE
  72. TROSPIUM [Concomitant]
     Active Substance: TROSPIUM
  73. QUETIAPINE [Concomitant]
     Active Substance: QUETIAPINE
  74. ROSUVASTATIN [Concomitant]
     Active Substance: ROSUVASTATIN
  75. LEVOTHYROXINE [Concomitant]
     Active Substance: LEVOTHYROXINE
  76. PANTOPRAZOLE [Concomitant]
     Active Substance: PANTOPRAZOLE
  77. RAMIPRIL [Concomitant]
     Active Substance: RAMIPRIL
  78. APIXABAN [Concomitant]
     Active Substance: APIXABAN
  79. DICLOFENAC [Concomitant]
     Active Substance: DICLOFENAC
     Dosage: 50 MG, SEVEN DAYS/WEEK
     Dates: start: 20250101

REACTIONS (8)
  - Anaemia postoperative [Recovered/Resolved]
  - Anaemia postoperative [Recovered/Resolved]
  - Anaemia postoperative [Recovered/Resolved]
  - Osteomyelitis chronic [Recovered/Resolved]
  - Osteomyelitis chronic [Not Recovered/Not Resolved]
  - Pain [Unknown]
  - Urinary tract infection [Recovered/Resolved]
  - Impaired healing [Not Recovered/Not Resolved]

NARRATIVE: CASE EVENT DATE: 20230925
